FAERS Safety Report 4573841-8 (Version None)
Quarter: 2005Q1

REPORT INFORMATION
  Report Type: 
  Country: None (occurrence: None)
  Receive Date: 20050203
  Receipt Date: 20050124
  Transmission Date: 20050727
  Serious: Yes (Hospitalization)
  Sender: FDA-Public Use
  Company Number: MK200412-0369-1

PATIENT
  Age: 72 Year
  Sex: Female
  Weight: 79.3795 kg

DRUGS (1)
  1. OPTIRAY 300 [Suspect]
     Indication: COMPUTERISED TOMOGRAM
     Dosage: 150 ML, ONCE, IV
     Route: 042
     Dates: start: 20041214, end: 20041214

REACTIONS (2)
  - COMPARTMENT SYNDROME [None]
  - EXTRAVASATION [None]
